FAERS Safety Report 7850358-6 (Version None)
Quarter: 2011Q4

REPORT INFORMATION
  Report Type: 
  Country: None (occurrence: None)
  Receive Date: 20111026
  Receipt Date: 20111017
  Transmission Date: 20120403
  Serious: Yes (Hospitalization, Other)
  Sender: FDA-Public Use
  Company Number: PT-JNJFOC-20111007839

PATIENT
  Age: 4 Decade
  Sex: Male

DRUGS (3)
  1. INVEGA [Suspect]
     Indication: SCHIZOPHRENIA
     Route: 048
  2. INVEGA [Suspect]
     Route: 048
  3. INVEGA [Suspect]
     Route: 048

REACTIONS (5)
  - OVERDOSE [None]
  - EXTRASYSTOLES [None]
  - AGITATION [None]
  - HYPERHIDROSIS [None]
  - HYPOMANIA [None]
